FAERS Safety Report 10055527 (Version 3)
Quarter: 2014Q2

REPORT INFORMATION
  Report Type: Spontaneous
  Country: GB (occurrence: GB)
  Receive Date: 20140403
  Receipt Date: 20140424
  Transmission Date: 20141212
  Serious: Yes (Hospitalization)
  Sender: FDA-Public Use
  Company Number: GB-BRISTOL-MYERS SQUIBB COMPANY-20407573

PATIENT
  Age: 72 Year
  Sex: Male

DRUGS (5)
  1. YERVOY [Suspect]
     Indication: MALIGNANT MELANOMA
     Dosage: 06-JUN-2013, 27-JUN-2013 AND 25-JUI-2013
     Route: 042
     Dates: start: 20130606
  2. DOMPERIDONE [Concomitant]
  3. DICLOFENAC [Concomitant]
  4. BUCCASTEM [Concomitant]
     Route: 060
  5. OMEPRAZOLE [Concomitant]

REACTIONS (1)
  - Inappropriate antidiuretic hormone secretion [Unknown]
